FAERS Safety Report 9238771 (Version 1)
Quarter: 2013Q1

REPORT INFORMATION
  Report Type: Spontaneous
  Country: US (occurrence: None)
  Receive Date: 20121107
  Receipt Date: 20121107
  Transmission Date: 20140127
  Serious: No
  Sender: FDA-Public Use
  Company Number: 2012HGS-003813

PATIENT
  Age: 67 Year
  Sex: Female
  Weight: 81.65 kg

DRUGS (16)
  1. BENLYSTA [Suspect]
     Indication: SYSTEMIC LUPUS ERYTHEMATOSUS
     Dosage: 1 IN 28 D
     Route: 042
     Dates: start: 20120710
  2. TRAMADOL (TRAMADOL) (TRAMADOL) [Concomitant]
  3. ALLOPURINOL (AOLLOPURINOL) (ALLPURINOL) [Concomitant]
  4. SPIRIVA (TIOTROPIUM BROMIDE) (TIOTROPIUM HYDROBRIMDE) [Concomitant]
  5. PREVACID (LANSOPRAZOLE) (LANSOPRAZOLE) [Concomitant]
  6. ZANTAC (RANITIDINE HYDROCHLORIDE) (RANITIDINE HYDROCHLORIDE) [Concomitant]
  7. PHENERGAN (PROMETHAZINE) (PROMETHAZINE) [Concomitant]
  8. AMBINE (ZOLPIDEM TARTRATE) (ZOLPIDEM TARTRATE) [Concomitant]
  9. ROBAXIN (METHOCARBAMOL) (METHOCARBAMOL) [Concomitant]
  10. NORVASC (AMLODIPINE BESILATE) (AMLODIPINE BESILATE) [Concomitant]
  11. LORATAB 10 (VICODIN) (PRACETAMOL, HYDROCODONE BITARTRATE) [Concomitant]
  12. LEVOTHYROXINE (LEVOTHYROXINE) (LEVOTHYROXINE) [Concomitant]
  13. PERFORMIST (FOMOTEROL FUMARATE ) (FOMOTEROL FUMARATE) [Concomitant]
  14. BUDESONIDE (BUDESONIDE) (BUDESONIDE) [Concomitant]
  15. FISH OIL (FISH OIL) (FISH OIL) [Concomitant]
  16. ALBUTEROL (SALBUTAMOL) (SALBUTAMOL) [Concomitant]

REACTIONS (21)
  - Fatigue [None]
  - Weight decreased [None]
  - Dysgeusia [None]
  - Palpitations [None]
  - Hyperhidrosis [None]
  - Rhinorrhoea [None]
  - Nasal congestion [None]
  - Chest discomfort [None]
  - Abdominal pain lower [None]
  - Dysphonia [None]
  - Oropharyngeal pain [None]
  - Ear infection [None]
  - Bronchitis [None]
  - Condition aggravated [None]
  - Cough [None]
  - Anxiety [None]
  - Feeling jittery [None]
  - Nervousness [None]
  - Nausea [None]
  - Insomnia [None]
  - Migraine [None]
